FAERS Safety Report 18795661 (Version 1)
Quarter: 2021Q1

REPORT INFORMATION
  Report Type: Spontaneous
  Country: CA (occurrence: CA)
  Receive Date: 20210127
  Receipt Date: 20210127
  Transmission Date: 20210419
  Serious: Yes (Death, Other)
  Sender: FDA-Public Use
  Company Number: CA-MUNDIPHARMA DS AND PHARMACOVIGILANCE-GBR-2017-0044848

PATIENT
  Age: 42 Year
  Sex: Female

DRUGS (2)
  1. HYDROMORPHONE HCL (SIMILAR TO 19?892) [Suspect]
     Active Substance: HYDROMORPHONE HYDROCHLORIDE
     Indication: CANCER PAIN
     Dosage: 3 MG, PM
     Route: 042
  2. NON?PMN MORPHINE SULFATE [Suspect]
     Active Substance: MORPHINE SULFATE
     Indication: CANCER PAIN
     Dosage: 2 MG, Q4H PRN
     Route: 042

REACTIONS (4)
  - Product name confusion [Fatal]
  - Somnolence [Not Recovered/Not Resolved]
  - Accidental overdose [Fatal]
  - Apnoea [Fatal]
